FAERS Safety Report 24355991 (Version 1)
Quarter: 2024Q3

REPORT INFORMATION
  Report Type: Report from Study
  Country: US (occurrence: US)
  Receive Date: 20240924
  Receipt Date: 20240924
  Transmission Date: 20241017
  Serious: Yes (Other)
  Sender: BOEHRINGER INGELHEIM
  Company Number: US-BoehringerIngelheim-2024-BI-051997

PATIENT
  Age: 61 Year
  Sex: Female

DRUGS (2)
  1. SPEVIGO [Suspect]
     Active Substance: SPESOLIMAB-SBZO
     Indication: Generalised pustular psoriasis
     Dosage: LOADING DOSE (600MG) TAKEN 9/7 (300MG) + 9/8 (300MG)
     Route: 058
     Dates: start: 20240907, end: 20240907
  2. SPEVIGO [Suspect]
     Active Substance: SPESOLIMAB-SBZO
     Dosage: LOADING DOSE (600MG) TAKEN 9/7 (300MG) + 9/8 (300MG)
     Route: 058
     Dates: start: 20240908, end: 20240908

REACTIONS (2)
  - Generalised pustular psoriasis [Not Recovered/Not Resolved]
  - Intentional product use issue [Unknown]

NARRATIVE: CASE EVENT DATE: 20240901
